FAERS Safety Report 4994954-2 (Version None)
Quarter: 2006Q2

REPORT INFORMATION
  Report Type: 
  Country: None (occurrence: None)
  Receive Date: 20060508
  Receipt Date: 20060316
  Transmission Date: 20061013
  Serious: Yes (Hospitalization, Other)
  Sender: FDA-Public Use
  Company Number: US-AVENTIS-200612684US

PATIENT
  Sex: Female
  Weight: 64 kg

DRUGS (2)
  1. TAXOTERE [Suspect]
     Indication: NON-SMALL CELL LUNG CANCER
     Route: 041
     Dates: start: 20060302, end: 20060302
  2. CARBOPLATIN [Concomitant]
     Indication: NON-SMALL CELL LUNG CANCER
     Route: 041
     Dates: start: 20060302, end: 20060302

REACTIONS (14)
  - BLOOD PRESSURE INCREASED [None]
  - DIZZINESS [None]
  - DYSARTHRIA [None]
  - DYSPNOEA [None]
  - FACIAL PARESIS [None]
  - FEELING ABNORMAL [None]
  - FEELING HOT [None]
  - FEELING HOT AND COLD [None]
  - HEART RATE INCREASED [None]
  - HEMIPLEGIA [None]
  - HYPERSENSITIVITY [None]
  - HYPOXIA [None]
  - SENSORY DISTURBANCE [None]
  - TRANSIENT ISCHAEMIC ATTACK [None]
